FAERS Safety Report 7957345-8 (Version None)
Quarter: 2011Q4

REPORT INFORMATION
  Report Type: 
  Country: None (occurrence: None)
  Receive Date: 20111205
  Receipt Date: 20111128
  Transmission Date: 20120403
  Serious: Yes (Life-Threatening, Hospitalization)
  Sender: FDA-Public Use
  Company Number: GXKR2011DE003464

PATIENT

DRUGS (3)
  1. FLUOXETINE [Suspect]
     Dosage: 20 MG, UNK
     Route: 048
     Dates: start: 20110521, end: 20110606
  2. FLUOXETINE [Suspect]
     Dosage: 10 MG, UNK
     Route: 048
     Dates: start: 20110517, end: 20110521
  3. LITHIUM-DURILES [Concomitant]
     Dosage: 900 MG, UNK
     Route: 048
     Dates: start: 20110603, end: 20110606

REACTIONS (7)
  - PALLOR [None]
  - HYPOTONIA [None]
  - FATIGUE [None]
  - SUICIDAL IDEATION [None]
  - SUICIDE ATTEMPT [None]
  - CARDIOVASCULAR DISORDER [None]
  - COMMUNICATION DISORDER [None]
